FAERS Safety Report 25732090 (Version 4)
Quarter: 2025Q4

REPORT INFORMATION
  Report Type: Spontaneous
  Country: AU (occurrence: AU)
  Receive Date: 20250827
  Receipt Date: 20251008
  Transmission Date: 20260117
  Serious: Yes (Disabling, Other)
  Sender: MYLAN
  Company Number: AU-MYLANLABS-2025M1072317

PATIENT
  Sex: Male

DRUGS (12)
  1. VALACYCLOVIR HYDROCHLORIDE [Suspect]
     Active Substance: VALACYCLOVIR HYDROCHLORIDE
     Indication: Ophthalmic herpes zoster
     Dosage: 2 DOSAGE FORM, TID
     Dates: start: 20250808, end: 202508
  2. VALACYCLOVIR HYDROCHLORIDE [Suspect]
     Active Substance: VALACYCLOVIR HYDROCHLORIDE
     Dosage: 2 DOSAGE FORM, TID
     Route: 065
     Dates: start: 20250808, end: 202508
  3. VALACYCLOVIR HYDROCHLORIDE [Suspect]
     Active Substance: VALACYCLOVIR HYDROCHLORIDE
     Dosage: 2 DOSAGE FORM, TID
     Route: 065
     Dates: start: 20250808, end: 202508
  4. VALACYCLOVIR HYDROCHLORIDE [Suspect]
     Active Substance: VALACYCLOVIR HYDROCHLORIDE
     Dosage: 2 DOSAGE FORM, TID
     Dates: start: 20250808, end: 202508
  5. PHENYLEPHRINE HYDROCHLORIDE\PREDNISOLONE ACETATE [Concomitant]
     Active Substance: PHENYLEPHRINE HYDROCHLORIDE\PREDNISOLONE ACETATE
     Dosage: 1 DOSAGE FORM, TID
     Dates: start: 20250814, end: 20250821
  6. PHENYLEPHRINE HYDROCHLORIDE\PREDNISOLONE ACETATE [Concomitant]
     Active Substance: PHENYLEPHRINE HYDROCHLORIDE\PREDNISOLONE ACETATE
     Dosage: 1 DOSAGE FORM, TID
     Route: 065
     Dates: start: 20250814, end: 20250821
  7. PHENYLEPHRINE HYDROCHLORIDE\PREDNISOLONE ACETATE [Concomitant]
     Active Substance: PHENYLEPHRINE HYDROCHLORIDE\PREDNISOLONE ACETATE
     Dosage: 1 DOSAGE FORM, TID
     Route: 065
     Dates: start: 20250814, end: 20250821
  8. PHENYLEPHRINE HYDROCHLORIDE\PREDNISOLONE ACETATE [Concomitant]
     Active Substance: PHENYLEPHRINE HYDROCHLORIDE\PREDNISOLONE ACETATE
     Dosage: 1 DOSAGE FORM, TID
     Dates: start: 20250814, end: 20250821
  9. TOBRAMYCIN [Concomitant]
     Active Substance: TOBRAMYCIN
     Dosage: 1 DOSAGE FORM, QID
     Dates: start: 20250811, end: 20250814
  10. TOBRAMYCIN [Concomitant]
     Active Substance: TOBRAMYCIN
     Dosage: 1 DOSAGE FORM, QID
     Route: 065
     Dates: start: 20250811, end: 20250814
  11. TOBRAMYCIN [Concomitant]
     Active Substance: TOBRAMYCIN
     Dosage: 1 DOSAGE FORM, QID
     Route: 065
     Dates: start: 20250811, end: 20250814
  12. TOBRAMYCIN [Concomitant]
     Active Substance: TOBRAMYCIN
     Dosage: 1 DOSAGE FORM, QID
     Dates: start: 20250811, end: 20250814

REACTIONS (5)
  - Ophthalmic herpes zoster [Not Recovered/Not Resolved]
  - Condition aggravated [Not Recovered/Not Resolved]
  - Drug ineffective [Unknown]
  - Blindness transient [Not Recovered/Not Resolved]
  - Product substitution issue [Unknown]
